FAERS Safety Report 18059457 (Version 5)
Quarter: 2021Q2

REPORT INFORMATION
  Report Type: Spontaneous
  Country: US (occurrence: US)
  Receive Date: 20200723
  Receipt Date: 20210628
  Transmission Date: 20210717
  Serious: No
  Sender: FDA-Public Use
  Company Number: US-PFIZER INC-2019554685

PATIENT
  Age: 67 Year
  Sex: Female

DRUGS (1)
  1. IBRANCE [Suspect]
     Active Substance: PALBOCICLIB
     Indication: BREAST CANCER FEMALE
     Dosage: 100 MG, CYCLIC (1 TABLET BY MOUTH MON?FRI FOR 4 WEEKS, THEN 2 WEEK OFF)
     Route: 048

REACTIONS (4)
  - White blood cell count abnormal [Unknown]
  - Off label use [Unknown]
  - Illness [Unknown]
  - COVID-19 [Unknown]
